FAERS Safety Report 6098769-6 (Version None)
Quarter: 2009Q1

REPORT INFORMATION
  Report Type: 
  Country: None (occurrence: None)
  Receive Date: 20090302
  Receipt Date: 20020924
  Transmission Date: 20090719
  Serious: Yes (Death)
  Sender: FDA-Public Use
  Company Number: JP-ASTRAZENECA-2009AP01529

PATIENT
  Age: 24601 Day
  Sex: Male
  Weight: 47 kg

DRUGS (1)
  1. IRESSA [Suspect]
     Indication: LUNG NEOPLASM MALIGNANT
     Dosage: DISEASE PROGRESSION
     Route: 048
     Dates: start: 20020408, end: 20020710

REACTIONS (2)
  - ANOREXIA [None]
  - MALAISE [None]
